FAERS Safety Report 4625474-2 (Version None)
Quarter: 2005Q2

REPORT INFORMATION
  Report Type: 
  Country: None (occurrence: None)
  Receive Date: 20050401
  Receipt Date: 20050321
  Transmission Date: 20051028
  Serious: Yes (Hospitalization)
  Sender: FDA-Public Use
  Company Number: PHFR2005GB01290

PATIENT
  Age: 41 Year
  Sex: Male

DRUGS (2)
  1. CLOZARIL [Suspect]
     Indication: SCHIZOPHRENIA
     Route: 048
     Dates: start: 19940216, end: 20050317
  2. CLOZARIL [Suspect]
     Dosage: 100MG/DAY
     Route: 048
     Dates: start: 20050320

REACTIONS (6)
  - COLECTOMY PARTIAL [None]
  - CONSTIPATION [None]
  - FAECALOMA [None]
  - INTESTINAL FUNCTIONAL DISORDER [None]
  - PLATELET COUNT DECREASED [None]
  - STUPOR [None]
